FAERS Safety Report 24112105 (Version 1)
Quarter: 2024Q3

REPORT INFORMATION
  Report Type: Report from Study
  Country: US (occurrence: US)
  Receive Date: 20240719
  Receipt Date: 20240719
  Transmission Date: 20241017
  Serious: Yes (Hospitalization)
  Sender: ABBVIE
  Company Number: US-ABBVIE-5842648

PATIENT
  Sex: Male
  Weight: 81.65 kg

DRUGS (17)
  1. VENCLEXTA [Suspect]
     Active Substance: VENETOCLAX
     Indication: Chronic lymphocytic leukaemia
     Route: 048
  2. VENCLEXTA [Suspect]
     Active Substance: VENETOCLAX
     Indication: Chronic lymphocytic leukaemia
     Route: 048
     Dates: start: 202310
  3. VENCLEXTA [Suspect]
     Active Substance: VENETOCLAX
     Indication: Chronic lymphocytic leukaemia
     Route: 048
  4. VENCLEXTA [Suspect]
     Active Substance: VENETOCLAX
     Indication: Chronic lymphocytic leukaemia
     Dosage: 50MG(1X50MG TAB) DAILY BY MOUTH WEEK 2
     Route: 048
  5. VENCLEXTA [Suspect]
     Active Substance: VENETOCLAX
     Indication: Chronic lymphocytic leukaemia
     Route: 048
  6. ELIQUIS [Concomitant]
     Active Substance: APIXABAN
     Indication: Anticoagulant therapy
     Dosage: STARTED YEAR AGO MAYBE
     Route: 048
  7. PIOGLITAZONE [Concomitant]
     Active Substance: PIOGLITAZONE
     Indication: Blood cholesterol abnormal
     Route: 048
     Dates: start: 2024
  8. OLMESARTAN [Concomitant]
     Active Substance: OLMESARTAN
     Indication: Renal disorder prophylaxis
     Route: 048
  9. ALLOPURINOL [Concomitant]
     Active Substance: ALLOPURINOL
     Indication: Product used for unknown indication
     Route: 048
     Dates: start: 202310
  10. HUMALOG [Concomitant]
     Active Substance: INSULIN LISPRO
     Indication: Diabetes mellitus
     Dosage: TAKEN WITH MEALS AND  FAST ACTING INSULIN. TAKES 8  UNITS AT BREAKFAST, 10 UNITS  WITH LUNCH, AND...
     Route: 058
  11. HUMALOG [Concomitant]
     Active Substance: INSULIN LISPRO
     Indication: Diabetes mellitus
     Dosage: KWIKPEN 100 UNIT/ML INJECT 6 UNITS UNDER THE SKIN DAILY AT BREAKFAST, 8 UNITS DAILY AT LUNCH AND ...
  12. LEVEMIR [Concomitant]
     Active Substance: INSULIN DETEMIR
     Indication: Diabetes mellitus
     Route: 058
  13. LEVEMIR [Concomitant]
     Active Substance: INSULIN DETEMIR
     Indication: Diabetes mellitus
     Dosage: 100 INSULIN 100 UNIT/ML (3 ML) INJECT 25 UNITS UNDER THE SKIN IN THE MORNING AND 20 UNITS AT BEDTIME
     Route: 058
  14. LACHYDRIN [Concomitant]
     Indication: Dry skin
     Dosage: 12 % LOTION APPLY TOPICALLY TO  THE AFFECTED AREA 1 TO 2 TIMES PER  DAY AS NEEDED FOR DRY SKIN
     Route: 061
  15. VITAMIN B12 [Concomitant]
     Active Substance: CYANOCOBALAMIN
     Indication: Product used for unknown indication
     Dosage: 1,000 MCG TABLET,  SUBLINGUAL PLACE 1 TABLET (1,000 MCG  TOTAL) UNDER THE TONGUE DAILY
     Route: 060
  16. BENICAR [Concomitant]
     Active Substance: OLMESARTAN MEDOXOMIL
     Indication: Product used for unknown indication
     Dosage: 5 MG TABLET TAKE 2 TABLETS  (10 MG TOTAL) BY MOUTH  DAILY
     Route: 048
  17. ACTOS [Concomitant]
     Active Substance: PIOGLITAZONE HYDROCHLORIDE
     Indication: Product used for unknown indication
     Dosage: 45 MG TABLET TAKE 1 TABLET(45 MG) BY MOUTH DAILY
     Route: 048

REACTIONS (8)
  - Rehabilitation therapy [Unknown]
  - Atrial fibrillation [Not Recovered/Not Resolved]
  - Blood glucose increased [Recovering/Resolving]
  - Abdominal discomfort [Not Recovered/Not Resolved]
  - Flatulence [Not Recovered/Not Resolved]
  - Gastrointestinal motility disorder [Not Recovered/Not Resolved]
  - Weight fluctuation [Not Recovered/Not Resolved]
  - Confusional state [Unknown]

NARRATIVE: CASE EVENT DATE: 20230101
